FAERS Safety Report 12740212 (Version 3)
Quarter: 2017Q1

REPORT INFORMATION
  Report Type: Report from Study
  Country: US (occurrence: US)
  Receive Date: 20160913
  Receipt Date: 20170217
  Transmission Date: 20170428
  Serious: Yes (Hospitalization, Other)
  Sender: FDA-Public Use
  Company Number: US-REGENERON PHARMACEUTICALS, INC.-2016-21462

PATIENT

DRUGS (5)
  1. EYLEA [Suspect]
     Active Substance: AFLIBERCEPT
     Dosage: UNK, OU
     Route: 031
     Dates: start: 20160812, end: 20160812
  2. EYLEA [Suspect]
     Active Substance: AFLIBERCEPT
     Indication: NEOVASCULAR AGE-RELATED MACULAR DEGENERATION
     Dosage: UNK, OD, VARIED, MOSTLY 2-3 MONTHS APART
     Route: 031
  3. EYLEA [Suspect]
     Active Substance: AFLIBERCEPT
     Dosage: OS
     Dates: start: 20151118, end: 20151118
  4. EYLEA [Suspect]
     Active Substance: AFLIBERCEPT
     Dosage: UNK, OD, MONTHLY
     Route: 031
  5. EYLEA [Suspect]
     Active Substance: AFLIBERCEPT
     Dosage: UNK, OS, MONTHLY
     Route: 031
     Dates: start: 20160715

REACTIONS (3)
  - Head injury [Unknown]
  - Fall [Recovered/Resolved]
  - Hospitalisation [Unknown]

NARRATIVE: CASE EVENT DATE: 20151205
